FAERS Safety Report 10651719 (Version 1)
Quarter: 2014Q4

REPORT INFORMATION
  Report Type: Spontaneous
  Country: IL (occurrence: IL)
  Receive Date: 20141215
  Receipt Date: 20141215
  Transmission Date: 20150529
  Serious: Yes (Hospitalization)
  Sender: FDA-Public Use
  Company Number: IL-SA-2014SA170039

PATIENT
  Age: 57 Year
  Sex: Female

DRUGS (8)
  1. CYANOCOBALAMIN. [Suspect]
     Active Substance: CYANOCOBALAMIN
     Route: 065
  2. VASCACE [Suspect]
     Active Substance: CILAZAPRIL ANHYDROUS
     Route: 065
  3. GLUCOMIN [Suspect]
     Active Substance: METFORMIN HYDROCHLORIDE
     Route: 065
  4. ASPIRIN. [Suspect]
     Active Substance: ASPIRIN
     Route: 065
  5. SIMVASTATIN. [Suspect]
     Active Substance: SIMVASTATIN
     Route: 065
  6. NILOTINIB [Suspect]
     Active Substance: NILOTINIB
     Indication: CHRONIC MYELOID LEUKAEMIA
     Route: 065
  7. AMARYL [Suspect]
     Active Substance: GLIMEPIRIDE
     Route: 065
  8. INSULIN [Suspect]
     Active Substance: INSULIN NOS
     Route: 065

REACTIONS (6)
  - Abdominal distension [Recovered/Resolved]
  - Pancreatitis [Recovered/Resolved]
  - Vomiting [Recovered/Resolved]
  - Nausea [Recovered/Resolved]
  - Abdominal pain [Recovered/Resolved]
  - Abdominal tenderness [Recovered/Resolved]

NARRATIVE: CASE EVENT DATE: 201411
